FAERS Safety Report 7958561-1 (Version None)
Quarter: 2011Q4

REPORT INFORMATION
  Report Type: 
  Country: None (occurrence: None)
  Receive Date: 20111206
  Receipt Date: 20111129
  Transmission Date: 20120403
  Serious: Yes (Hospitalization, Other)
  Sender: FDA-Public Use
  Company Number: US-BIOGENIDEC-2011BI042787

PATIENT
  Age: 60 Year
  Sex: Male

DRUGS (8)
  1. CRESTOR [Concomitant]
  2. ZINC [Concomitant]
  3. FLOMAX [Concomitant]
  4. OXYBUTYNIN [Concomitant]
  5. VIAGRA [Concomitant]
  6. TYSABRI [Suspect]
     Indication: MULTIPLE SCLEROSIS
     Route: 042
     Dates: start: 20080416, end: 20111013
  7. GABAPENTIN [Concomitant]
  8. MULTI-VITAMINS [Concomitant]

REACTIONS (1)
  - PROGRESSIVE MULTIFOCAL LEUKOENCEPHALOPATHY [None]
